FAERS Safety Report 4981398-2 (Version None)
Quarter: 2006Q2

REPORT INFORMATION
  Report Type: 
  Country: None (occurrence: None)
  Receive Date: 20060424
  Receipt Date: 20050412
  Transmission Date: 20061013
  Serious: Yes (Hospitalization)
  Sender: FDA-Public Use
  Company Number: US-MERCK-0504USA02101

PATIENT
  Age: 52 Year
  Sex: Female
  Weight: 70 kg

DRUGS (1)
  1. VIOXX [Suspect]
     Indication: OSTEOARTHRITIS
     Route: 048
     Dates: start: 20021125, end: 20031212

REACTIONS (6)
  - ANGIOPATHY [None]
  - ARTERIAL DISORDER [None]
  - CAROTID ARTERY OCCLUSION [None]
  - CORONARY ARTERY DISEASE [None]
  - DEPRESSION [None]
  - MYOCARDIAL INFARCTION [None]
